FAERS Safety Report 8030193-9 (Version None)
Quarter: 2011Q4

REPORT INFORMATION
  Report Type: 
  Country: None (occurrence: None)
  Receive Date: 20111130
  Receipt Date: 20110531
  Transmission Date: 20120403
  Serious: Yes (Disabling, Other)
  Sender: FDA-Public Use
  Company Number: US201006003615

PATIENT
  Age: 45 Year
  Sex: Female
  Weight: 78.5 kg

DRUGS (5)
  1. EXENATIDE UNK STRENGTH PEN, DISPOSABLE DEVICE (EXENATIDE PEN (UNKNOWN [Concomitant]
  2. ZYRTEC [Concomitant]
  3. METFORMIN HCL [Concomitant]
  4. BYETTA [Suspect]
     Dates: start: 20080617, end: 20080717
  5. LANTUS [Concomitant]

REACTIONS (3)
  - OFF LABEL USE [None]
  - RENAL DISORDER [None]
  - PANCREATITIS [None]
